FAERS Safety Report 4305304-9 (Version None)
Quarter: 2004Q1

REPORT INFORMATION
  Report Type: 
  Country: None (occurrence: None)
  Receive Date: 20040226
  Receipt Date: 20030403
  Transmission Date: 20041129
  Serious: Yes (Hospitalization)
  Sender: FDA-Public Use
  Company Number: US-BRISTOL-MYERS SQUIBB COMPANY-12229977

PATIENT
  Age: 65 Year
  Sex: Female
  Weight: 74 kg

DRUGS (11)
  1. TAXOL [Suspect]
     Indication: LUNG NEOPLASM MALIGNANT
     Dosage: 50 MG.M2 PIGGY-BACKED TO NSS
     Route: 042
     Dates: start: 20030402, end: 20030402
  2. ZOFRAN [Concomitant]
     Indication: PREMEDICATION
     Route: 042
  3. DECADRON [Concomitant]
     Indication: PREMEDICATION
     Route: 042
  4. ZANTAC [Concomitant]
     Indication: PREMEDICATION
     Route: 042
  5. BENADRYL [Concomitant]
     Indication: PREMEDICATION
     Route: 042
  6. ALTACE [Concomitant]
  7. DYAZIDE [Concomitant]
  8. LIPITOR [Concomitant]
  9. CARAFATE [Concomitant]
  10. FOSAMAX [Concomitant]
  11. PRILOSEC [Concomitant]

REACTIONS (2)
  - BRONCHOSPASM [None]
  - SKIN DISCOLOURATION [None]
